FAERS Safety Report 20377526 (Version 1)
Quarter: 2022Q1

REPORT INFORMATION
  Report Type: Spontaneous
  Country: US (occurrence: US)
  Receive Date: 20220126
  Receipt Date: 20220126
  Transmission Date: 20220423
  Serious: No
  Sender: FDA-Public Use
  Company Number: US-ALLERGAN-2129657US

PATIENT
  Age: 46 Year
  Sex: Female

DRUGS (16)
  1. UBRELVY [Suspect]
     Active Substance: UBROGEPANT
     Indication: Migraine
     Dosage: ONE 100MG TABLET AT ONSET OF MIGRAINE / CAN REPEAT AS NEEDED FOR A MAX OF 2 TABLETS IN 24 HOURS
     Route: 048
  2. UBRELVY [Suspect]
     Active Substance: UBROGEPANT
     Dosage: ONE 100MG TABLET AT ONSET OF MIGRAINE / CAN REPEAT AS NEEDED FOR A MAX OF 2 TABLETS IN 24 HOURS
     Route: 048
  3. ONDANSETRON [Suspect]
     Active Substance: ONDANSETRON
     Indication: Nausea
     Dosage: 4 MG, Q6HR
  4. VIIBRYD [Concomitant]
     Active Substance: VILAZODONE HYDROCHLORIDE
     Indication: Depression
     Dosage: 20 MG
  5. CETIRIZINE [Concomitant]
     Active Substance: CETIRIZINE HYDROCHLORIDE
     Indication: Hypersensitivity
     Dosage: 10 MG
  6. QUETIAPINE FUMARATE [Concomitant]
     Active Substance: QUETIAPINE FUMARATE
     Indication: Sleep disorder
     Dosage: 500 MG
  7. DOXYCYCLINE HYCLATE [Concomitant]
     Active Substance: DOXYCYCLINE HYCLATE
     Indication: Hidradenitis
     Dosage: 50 MG, BID
  8. PROPRANOLOL [Concomitant]
     Active Substance: PROPRANOLOL HYDROCHLORIDE
     Indication: Tachycardia
     Dosage: 10MG
  9. CLONAZEPAM [Concomitant]
     Active Substance: CLONAZEPAM
     Indication: Anxiety
     Dosage: 0.5 MG, QHS
  10. CLONAZEPAM [Concomitant]
     Active Substance: CLONAZEPAM
     Indication: Post-traumatic stress disorder
  11. TEMAZEPAM [Concomitant]
     Active Substance: TEMAZEPAM
     Indication: Sleep disorder
     Dosage: 15MG 1-2 CAPSULES AT BEDTIME
  12. TEMAZEPAM [Concomitant]
     Active Substance: TEMAZEPAM
     Indication: Post-traumatic stress disorder
  13. FAMOTIDINE [Concomitant]
     Active Substance: FAMOTIDINE
     Indication: Gastrooesophageal reflux disease
     Dosage: 1 TABLET AT BEDTIME
  14. TIZANIDINE [Concomitant]
     Active Substance: TIZANIDINE
     Indication: Muscle spasms
     Dosage: 4MG TABLETS TWO EVERY 8 HOURS AND 3 AT BEDTIME
     Route: 048
  15. ALPRAZOLAM [Concomitant]
     Active Substance: ALPRAZOLAM
     Indication: Anxiety
     Dosage: 1 MG, TID
  16. ALPRAZOLAM [Concomitant]
     Active Substance: ALPRAZOLAM
     Indication: Post-traumatic stress disorder

REACTIONS (12)
  - Joint swelling [Not Recovered/Not Resolved]
  - Arthralgia [Unknown]
  - Arthralgia [Recovering/Resolving]
  - Joint swelling [Unknown]
  - Peripheral swelling [Unknown]
  - Joint swelling [Unknown]
  - Diarrhoea [Unknown]
  - Hyposomnia [Unknown]
  - Feeling abnormal [Unknown]
  - Rheumatoid factor [Unknown]
  - Nausea [Not Recovered/Not Resolved]
  - Product lot number issue [Unknown]

NARRATIVE: CASE EVENT DATE: 20210501
